FAERS Safety Report 12508141 (Version 1)
Quarter: 2016Q2

REPORT INFORMATION
  Report Type: Spontaneous
  Country: US (occurrence: US)
  Receive Date: 20160629
  Receipt Date: 20160629
  Transmission Date: 20160815
  Serious: No
  Sender: FDA-Public Use
  Company Number: US-PFIZER INC-2016289008

PATIENT
  Age: 65 Year
  Sex: Male
  Weight: 49.44 kg

DRUGS (2)
  1. SKELAXIN [Suspect]
     Active Substance: METAXALONE
     Indication: MYALGIA
     Dosage: 800 MG, 3X/DAY, LONG WHITE PILL
     Route: 048
     Dates: start: 20160121
  2. ROPINIROLE. [Concomitant]
     Active Substance: ROPINIROLE
     Indication: PAIN
     Dosage: 2 MG, 3X/DAY, SMALL PILL
     Route: 048

REACTIONS (2)
  - Insomnia [Unknown]
  - Myalgia [Not Recovered/Not Resolved]
